FAERS Safety Report 5849210-7 (Version None)
Quarter: 2008Q3

REPORT INFORMATION
  Report Type: 
  Country: None (occurrence: None)
  Receive Date: 20080819
  Receipt Date: 20080107
  Transmission Date: 20090109
  Serious: No
  Sender: FDA-Public Use
  Company Number: US-BAYER-200810738NA

PATIENT

DRUGS (1)
  1. BETASERON [Suspect]
     Indication: MULTIPLE SCLEROSIS

REACTIONS (2)
  - HEPATIC ENZYME INCREASED [None]
  - WHITE BLOOD CELL COUNT DECREASED [None]
